FAERS Safety Report 16544019 (Version 1)
Quarter: 2019Q3

REPORT INFORMATION
  Report Type: Report from Study
  Country: PK (occurrence: PK)
  Receive Date: 20190709
  Receipt Date: 20190709
  Transmission Date: 20191004
  Serious: Yes (Hospitalization)
  Sender: FDA-Public Use
  Company Number: PK-SA-2019SA180423

PATIENT
  Sex: Male

DRUGS (7)
  1. TENSILON [Concomitant]
     Active Substance: EDROPHONIUM CHLORIDE
     Dosage: 0.4 MG, QD
     Route: 048
     Dates: start: 20190612
  2. INSULIN GLULISINE [Suspect]
     Active Substance: INSULIN GLULISINE
     Dosage: 16 IU, BID
     Route: 058
     Dates: start: 20120703
  3. NOVONORM [Concomitant]
     Active Substance: REPAGLINIDE
     Indication: HYPERGLYCAEMIA
     Dosage: UNK UNK, TID
     Route: 048
     Dates: start: 20190612
  4. CLOPIDOGREL [Concomitant]
     Active Substance: CLOPIDOGREL BISULFATE
     Indication: ANTIPLATELET THERAPY
     Dosage: 75 MG, QD
     Route: 048
     Dates: start: 20190612
  5. INSULIN GLULISINE [Suspect]
     Active Substance: INSULIN GLULISINE
     Indication: DIABETES MELLITUS
     Dosage: 8 U, BID
     Route: 058
  6. RANEXA [Concomitant]
     Active Substance: RANOLAZINE
     Indication: ANGINA PECTORIS
     Dosage: 500 MG, BID
     Route: 048
     Dates: start: 20190612
  7. ZANTAC [Concomitant]
     Active Substance: RANITIDINE HYDROCHLORIDE
     Indication: ULCER
     Dosage: 160 MG, TID
     Route: 048
     Dates: start: 20190612

REACTIONS (2)
  - Blood glucose fluctuation [Not Recovered/Not Resolved]
  - Fall [Not Recovered/Not Resolved]

NARRATIVE: CASE EVENT DATE: 20190203
